FAERS Safety Report 6261184-6 (Version None)
Quarter: 2009Q3

REPORT INFORMATION
  Report Type: 
  Country: None (occurrence: None)
  Receive Date: 20090709
  Receipt Date: 20080707
  Transmission Date: 20100115
  Serious: No
  Sender: FDA-Public Use
  Company Number: US-KINGPHARMUSA00001-K200800779

PATIENT
  Sex: Female

DRUGS (1)
  1. LEVOXYL [Suspect]

REACTIONS (2)
  - PALPITATIONS [None]
  - WEIGHT INCREASED [None]
